FAERS Safety Report 12137775 (Version 1)
Quarter: 2016Q1

REPORT INFORMATION
  Report Type: Spontaneous
  Country: SE (occurrence: SE)
  Receive Date: 20160302
  Receipt Date: 20160302
  Transmission Date: 20160526
  Serious: Yes (Other)
  Sender: FDA-Public Use
  Company Number: SE-009507513-1505SWE000664

PATIENT
  Sex: Male

DRUGS (1)
  1. CUBICIN [Suspect]
     Active Substance: DAPTOMYCIN
     Indication: PRODUCT USED FOR UNKNOWN INDICATION
     Dosage: UNK, UNK, UNK
     Route: 065

REACTIONS (4)
  - Haemoglobin decreased [Unknown]
  - Intervertebral discitis [Unknown]
  - Device related infection [Unknown]
  - Blood alkaline phosphatase increased [Unknown]
